FAERS Safety Report 25188784 (Version 1)
Quarter: 2025Q2

REPORT INFORMATION
  Report Type: Spontaneous
  Country: KR (occurrence: KR)
  Receive Date: 20250411
  Receipt Date: 20250411
  Transmission Date: 20250716
  Serious: Yes (Hospitalization, Other)
  Sender: MYLAN
  Company Number: KR-MYLANLABS-2025M1029425

PATIENT
  Age: 75 Year
  Sex: Female

DRUGS (28)
  1. AMLODIPINE [Suspect]
     Active Substance: AMLODIPINE BESYLATE
     Indication: Essential hypertension
     Dosage: UNK, QD
     Dates: start: 20220715
  2. AMLODIPINE [Suspect]
     Active Substance: AMLODIPINE BESYLATE
     Dosage: UNK, QD
     Route: 065
     Dates: start: 20220715
  3. AMLODIPINE [Suspect]
     Active Substance: AMLODIPINE BESYLATE
     Dosage: UNK, QD
     Route: 065
     Dates: start: 20220715
  4. AMLODIPINE [Suspect]
     Active Substance: AMLODIPINE BESYLATE
     Dosage: UNK, QD
     Dates: start: 20220715
  5. ELIQUIS [Suspect]
     Active Substance: APIXABAN
     Indication: Product used for unknown indication
     Dosage: 5 MILLIGRAM, BID
     Dates: start: 20220715
  6. ELIQUIS [Suspect]
     Active Substance: APIXABAN
     Dosage: 5 MILLIGRAM, BID
     Route: 065
     Dates: start: 20220715
  7. ELIQUIS [Suspect]
     Active Substance: APIXABAN
     Dosage: 5 MILLIGRAM, BID
     Route: 065
     Dates: start: 20220715
  8. ELIQUIS [Suspect]
     Active Substance: APIXABAN
     Dosage: 5 MILLIGRAM, BID
     Dates: start: 20220715
  9. TELMISARTAN [Suspect]
     Active Substance: TELMISARTAN
     Indication: Essential hypertension
     Dosage: UNK UNK, QD
     Dates: start: 20220715
  10. TELMISARTAN [Suspect]
     Active Substance: TELMISARTAN
     Dosage: UNK UNK, QD
     Route: 065
     Dates: start: 20220715
  11. TELMISARTAN [Suspect]
     Active Substance: TELMISARTAN
     Dosage: UNK UNK, QD
     Route: 065
     Dates: start: 20220715
  12. TELMISARTAN [Suspect]
     Active Substance: TELMISARTAN
     Dosage: UNK UNK, QD
     Dates: start: 20220715
  13. OLOPATADINE HYDROCHLORIDE [Suspect]
     Active Substance: OLOPATADINE HYDROCHLORIDE
     Indication: Pruritus
     Dosage: UNK UNK, BID
     Dates: start: 20220715
  14. OLOPATADINE HYDROCHLORIDE [Suspect]
     Active Substance: OLOPATADINE HYDROCHLORIDE
     Indication: Rhinitis allergic
     Dosage: UNK UNK, BID
     Route: 065
     Dates: start: 20220715
  15. OLOPATADINE HYDROCHLORIDE [Suspect]
     Active Substance: OLOPATADINE HYDROCHLORIDE
     Dosage: UNK UNK, BID
     Route: 065
     Dates: start: 20220715
  16. OLOPATADINE HYDROCHLORIDE [Suspect]
     Active Substance: OLOPATADINE HYDROCHLORIDE
     Dosage: UNK UNK, BID
     Dates: start: 20220715
  17. ACETAMINOPHEN [Suspect]
     Active Substance: ACETAMINOPHEN
     Indication: Neuralgia
     Dosage: UNK UNK, QD
     Dates: start: 20220715
  18. ACETAMINOPHEN [Suspect]
     Active Substance: ACETAMINOPHEN
     Indication: Myalgia
     Dosage: UNK UNK, QD
     Route: 065
     Dates: start: 20220715
  19. ACETAMINOPHEN [Suspect]
     Active Substance: ACETAMINOPHEN
     Indication: Muscle spasms
     Dosage: UNK UNK, QD
     Route: 065
     Dates: start: 20220715
  20. ACETAMINOPHEN [Suspect]
     Active Substance: ACETAMINOPHEN
     Indication: Arthralgia
     Dosage: UNK UNK, QD
     Dates: start: 20220715
  21. CHLORZOXAZONE [Suspect]
     Active Substance: CHLORZOXAZONE
     Indication: Myalgia
     Dosage: UNK, QD
     Dates: start: 20220715
  22. CHLORZOXAZONE [Suspect]
     Active Substance: CHLORZOXAZONE
     Indication: Neuralgia
     Dosage: UNK, QD
     Route: 065
     Dates: start: 20220715
  23. CHLORZOXAZONE [Suspect]
     Active Substance: CHLORZOXAZONE
     Indication: Arthralgia
     Dosage: UNK, QD
     Route: 065
     Dates: start: 20220715
  24. CHLORZOXAZONE [Suspect]
     Active Substance: CHLORZOXAZONE
     Indication: Muscle spasms
     Dosage: UNK, QD
     Dates: start: 20220715
  25. FEXOFENADINE HYDROCHLORIDE [Suspect]
     Active Substance: FEXOFENADINE HYDROCHLORIDE
     Indication: Dermatitis allergic
  26. FEXOFENADINE HYDROCHLORIDE [Suspect]
     Active Substance: FEXOFENADINE HYDROCHLORIDE
     Route: 065
  27. FEXOFENADINE HYDROCHLORIDE [Suspect]
     Active Substance: FEXOFENADINE HYDROCHLORIDE
     Route: 065
  28. FEXOFENADINE HYDROCHLORIDE [Suspect]
     Active Substance: FEXOFENADINE HYDROCHLORIDE

REACTIONS (1)
  - Cerebral haemorrhage [Recovered/Resolved]

NARRATIVE: CASE EVENT DATE: 20220715
